FAERS Safety Report 5962048-5 (Version None)
Quarter: 2008Q4

REPORT INFORMATION
  Report Type: 
  Country: None (occurrence: None)
  Receive Date: 20081121
  Receipt Date: 20081112
  Transmission Date: 20090506
  Serious: Yes (Other)
  Sender: FDA-Public Use
  Company Number: PHBS2008AU06359

PATIENT
  Age: 32 Year
  Sex: Female

DRUGS (6)
  1. OXPRENOLOL [Suspect]
     Indication: HYPERTENSION
  2. FELODIPINE [Suspect]
     Indication: HYPERTENSION
  3. PRAZSOIN HCL [Suspect]
     Indication: HYPERTENSION
  4. CAPTOPRIL [Suspect]
  5. CALCITRIOL [Concomitant]
  6. CALCIUM [Concomitant]

REACTIONS (7)
  - DELIVERY [None]
  - DRUG EXPOSURE DURING PREGNANCY [None]
  - HYPERTENSION [None]
  - INDUCED LABOUR [None]
  - PERITONEAL DIALYSIS [None]
  - PERITONITIS [None]
  - STAPHYLOCOCCAL INFECTION [None]
